FAERS Safety Report 21739509 (Version 1)
Quarter: 2022Q4

REPORT INFORMATION
  Report Type: Spontaneous
  Country: CA (occurrence: CA)
  Receive Date: 20221216
  Receipt Date: 20221216
  Transmission Date: 20230113
  Serious: Yes (Other)
  Sender: FDA-Public Use
  Company Number: CA-BAYER-2022A171264

PATIENT
  Age: 61 Year
  Sex: Male

DRUGS (9)
  1. CIPROFLOXACIN [Suspect]
     Active Substance: CIPROFLOXACIN
     Indication: Lung abscess
     Dosage: 2 EVERY 1 DAYS
     Route: 048
  2. CIPROFLOXACIN [Suspect]
     Active Substance: CIPROFLOXACIN
     Indication: Aspiration
  3. PHENYTOIN SODIUM [Suspect]
     Active Substance: PHENYTOIN SODIUM
     Indication: Seizure
     Dosage: 3 EVERY 1 DAYS
     Route: 048
  4. PHENYTOIN SODIUM [Suspect]
     Active Substance: PHENYTOIN SODIUM
     Indication: Cerebrovascular accident
     Dosage: 3 EVERY 1 DAYS
     Route: 048
  5. VITAMIN B1 [Concomitant]
     Active Substance: THIAMINE HYDROCHLORIDE
     Route: 048
  6. PIMOZIDE [Concomitant]
     Active Substance: PIMOZIDE
     Dosage: NOT SPECIFIED
  7. CLINDAMYCIN [Concomitant]
     Active Substance: CLINDAMYCIN
     Indication: Lung abscess
     Dosage: 4 EVERY 1 DAYS
     Route: 048
  8. CLINDAMYCIN [Concomitant]
     Active Substance: CLINDAMYCIN
     Indication: Aspiration
  9. PHENOBARBITAL [Concomitant]
     Active Substance: PHENOBARBITAL

REACTIONS (3)
  - Seizure [Unknown]
  - Drug interaction [Unknown]
  - Off label use [Unknown]
